FAERS Safety Report 5291282-5 (Version None)
Quarter: 2007Q2

REPORT INFORMATION
  Report Type: 
  Country: None (occurrence: None)
  Receive Date: 20070409
  Receipt Date: 20070330
  Transmission Date: 20071010
  Serious: Yes (Hospitalization)
  Sender: FDA-Public Use
  Company Number: FR-ABBOTT-07P-056-0363664-00

PATIENT
  Age: 33 Year
  Sex: Female
  Weight: 52 kg

DRUGS (3)
  1. ZECLAR [Suspect]
     Indication: COUGH
     Route: 048
     Dates: start: 20070203, end: 20070207
  2. HELICIDINE [Suspect]
     Indication: COUGH
     Route: 048
     Dates: start: 20070203, end: 20070207
  3. PREDNISOLONE SODIUM SULFOBENZOATE [Suspect]
     Indication: COUGH
     Route: 048
     Dates: start: 20070203, end: 20070207

REACTIONS (2)
  - RESPIRATORY TRACT CONGESTION [None]
  - RHINORRHOEA [None]
